FAERS Safety Report 18271071 (Version 1)
Quarter: 2020Q3

REPORT INFORMATION
  Report Type: Spontaneous
  Country: AT (occurrence: AT)
  Receive Date: 20200916
  Receipt Date: 20200916
  Transmission Date: 20201103
  Serious: Yes (Life-Threatening)
  Sender: FDA-Public Use
  Company Number: AT-TEVA-2020-AT-1826679

PATIENT
  Age: 49 Year
  Sex: Female

DRUGS (1)
  1. DULOXETINE. [Suspect]
     Active Substance: DULOXETINE
     Indication: MYOFASCIAL PAIN SYNDROME
     Dosage: DULOXETIN 30 MG ? EXACT PRODUCT NAME UNKNOWN
     Route: 065
     Dates: start: 20200807, end: 20200811

REACTIONS (2)
  - Feeling guilty [Recovering/Resolving]
  - Suicidal ideation [Recovering/Resolving]
